FAERS Safety Report 4476076-2 (Version None)
Quarter: 2004Q4

REPORT INFORMATION
  Report Type: 
  Country: None (occurrence: None)
  Receive Date: 20041012
  Receipt Date: 20040929
  Transmission Date: 20050328
  Serious: Yes (Other)
  Sender: FDA-Public Use
  Company Number: 2004030156

PATIENT
  Age: 60 Year
  Sex: Female

DRUGS (7)
  1. TIKOSYN [Suspect]
     Indication: ATRIAL FIBRILLATION
     Dosage: 1000 MCG (500 MCG, 2 IN 1 D), ORAL
     Route: 048
     Dates: start: 20040401
  2. ALL OTHER THERAPEUTIC PRODUCTS (ALL OTHER THERAPEUTIC PRODUCTS)`` [Suspect]
     Indication: ILL-DEFINED DISORDER
  3. WARFARIN SODIUM [Concomitant]
  4. ADVICOR - SLOW RELEASE (LOVASTATIN, NICOTINIC ACID) [Concomitant]
  5. THOMAPYRIN N (ACETYLSALICYLIC ACID, CAFFEINE, PARACETAMOL) [Concomitant]
  6. ANTIDEPRESSANTS (ANTIDEPRESSANTS) [Concomitant]
  7. SOTALOL HCL [Concomitant]

REACTIONS (5)
  - DIZZINESS [None]
  - EXTRASYSTOLES [None]
  - HEART RATE IRREGULAR [None]
  - PALLOR [None]
  - SYNCOPE [None]
